FAERS Safety Report 10769020 (Version 6)
Quarter: 2016Q2

REPORT INFORMATION
  Report Type: Spontaneous
  Country: US (occurrence: US)
  Receive Date: 20150206
  Receipt Date: 20160512
  Transmission Date: 20160815
  Serious: Yes (Other)
  Sender: FDA-Public Use
  Company Number: US-JNJFOC-20150121284

PATIENT
  Sex: Female
  Weight: 68.04 kg

DRUGS (2)
  1. TOPAMAX [Suspect]
     Active Substance: TOPIRAMATE
     Indication: SEIZURE
     Route: 048
  2. TOPAMAX [Suspect]
     Active Substance: TOPIRAMATE
     Indication: SEIZURE
     Route: 048

REACTIONS (18)
  - Eye disorder [Recovered/Resolved]
  - Fatigue [Unknown]
  - Hypothyroidism [Unknown]
  - Memory impairment [Unknown]
  - Confusional state [Unknown]
  - Ocular hyperaemia [Not Recovered/Not Resolved]
  - Alopecia [Not Recovered/Not Resolved]
  - Seizure [Recovering/Resolving]
  - Dandruff [Recovering/Resolving]
  - Visual acuity reduced [Not Recovered/Not Resolved]
  - Speech disorder [Unknown]
  - Glaucoma [Not Recovered/Not Resolved]
  - Peripheral swelling [Unknown]
  - Feeling cold [Not Recovered/Not Resolved]
  - Thyroid disorder [Unknown]
  - Cataract [Unknown]
  - Superficial injury of eye [Unknown]
  - Weight increased [Unknown]

NARRATIVE: CASE EVENT DATE: 2014
